FAERS Safety Report 6257332-4 (Version None)
Quarter: 2009Q3

REPORT INFORMATION
  Report Type: 
  Country: None (occurrence: None)
  Receive Date: 20090706
  Receipt Date: 20090622
  Transmission Date: 20100115
  Serious: Yes (Other)
  Sender: FDA-Public Use
  Company Number: PHHY2009CL24967

PATIENT
  Age: 65 Year
  Sex: Male

DRUGS (2)
  1. TAREG D [Suspect]
     Indication: HYPERTENSION
     Dosage: 1 DF (160/12.5 MG)/ DAY
     Dates: start: 20090201
  2. OMEPRAZOLE [Concomitant]

REACTIONS (1)
  - SURGERY [None]
